FAERS Safety Report 19520767 (Version 1)
Quarter: 2021Q3

REPORT INFORMATION
  Report Type: Spontaneous
  Country: JP (occurrence: JP)
  Receive Date: 20210712
  Receipt Date: 20210712
  Transmission Date: 20211014
  Serious: Yes (Other)
  Sender: FDA-Public Use
  Company Number: JP-PFIZER INC-2021796896

PATIENT
  Sex: Male

DRUGS (1)
  1. DALACIN [Suspect]
     Active Substance: CLINDAMYCIN
     Indication: GINGIVAL OEDEMA
     Dosage: UNK
     Route: 048
     Dates: start: 20210626

REACTIONS (1)
  - Blood creatinine increased [Unknown]
